FAERS Safety Report 9826681 (Version 1)
Quarter: 2014Q1

REPORT INFORMATION
  Report Type: Spontaneous
  Country: US (occurrence: US)
  Receive Date: 20140117
  Receipt Date: 20140117
  Transmission Date: 20141002
  Serious: No
  Sender: FDA-Public Use
  Company Number: US-BIOGENIDEC-2014BI003152

PATIENT
  Sex: Male

DRUGS (9)
  1. TECFIDERA [Suspect]
     Indication: MULTIPLE SCLEROSIS
     Route: 048
     Dates: start: 20131106
  2. ACEBUTOLOL HCL [Concomitant]
  3. ALFUZOSIN HCL ER [Concomitant]
  4. ATORVASTATIN CALCIUM [Concomitant]
  5. B COMPLEX [Concomitant]
  6. CELEBREX [Concomitant]
  7. LYRICA [Concomitant]
  8. PANTOPRAZOLE SODIUM [Concomitant]
  9. TRAMADOL HCL [Concomitant]

REACTIONS (2)
  - Dizziness [Unknown]
  - Flushing [Unknown]
